FAERS Safety Report 11370426 (Version 1)
Quarter: 2015Q3

REPORT INFORMATION
  Report Type: Spontaneous
  Country: BR (occurrence: BR)
  Receive Date: 20150812
  Receipt Date: 20150812
  Transmission Date: 20151125
  Serious: Yes (Other)
  Sender: FDA-Public Use
  Company Number: BR-JNJFOC-20150806118

PATIENT
  Age: 38 Year
  Sex: Male

DRUGS (2)
  1. WARFARIN [Concomitant]
     Active Substance: WARFARIN
     Route: 065
  2. RIVAROXABAN [Suspect]
     Active Substance: RIVAROXABAN
     Indication: PRODUCT USED FOR UNKNOWN INDICATION
     Route: 048

REACTIONS (2)
  - Peripheral ischaemia [Unknown]
  - Drug ineffective [Unknown]
